FAERS Safety Report 9163047 (Version 3)
Quarter: 2013Q2

REPORT INFORMATION
  Report Type: Spontaneous
  Country: JP (occurrence: None)
  Receive Date: 20130227
  Receipt Date: 20130425
  Transmission Date: 20140414
  Serious: Yes (Other)
  Sender: FDA-Public Use
  Company Number: JP-20130010

PATIENT
  Age: 54 Year
  Sex: Male

DRUGS (2)
  1. LIPIODOL ULTRA FLUIDE [Suspect]
     Indication: THERAPEUTIC EMBOLISATION
     Route: 013
     Dates: start: 20050902
  2. NBCA (N0BUTYL02-CYANOACRYLATE) [Suspect]
     Indication: THERAPEUTIC EMBOLISATION
     Route: 013

REACTIONS (4)
  - Peripheral ischaemia [None]
  - Off label use [None]
  - Arterial thrombosis [None]
  - Embolism arterial [None]
